FAERS Safety Report 5263880-6 (Version None)
Quarter: 2007Q1

REPORT INFORMATION
  Report Type: 
  Country: None (occurrence: None)
  Receive Date: 20061213
  Receipt Date: 20041027
  Transmission Date: 20070707
  Serious: Yes (Other)
  Sender: FDA-Public Use
  Company Number: 2004UW20387

PATIENT
  Age: 68 Year
  Sex: Female
  Weight: 70.3075 kg

DRUGS (7)
  1. IRESSA [Suspect]
     Indication: NON-SMALL CELL LUNG CANCER METASTATIC
  2. CARDIZEM [Concomitant]
  3. ZYRTEC [Concomitant]
  4. DILANTIN [Concomitant]
  5. GLUCOPHAGE [Concomitant]
  6. GLUCOTROL [Concomitant]
  7. XANAX [Concomitant]

REACTIONS (4)
  - ANOREXIA [None]
  - DRY SKIN [None]
  - HAIR GROWTH ABNORMAL [None]
  - NAIL DISORDER [None]
